FAERS Safety Report 8294932-4 (Version None)
Quarter: 2012Q2

REPORT INFORMATION
  Report Type: 
  Country: None (occurrence: None)
  Receive Date: 20120418
  Receipt Date: 20120409
  Transmission Date: 20120825
  Serious: Yes (Hospitalization)
  Sender: FDA-Public Use
  Company Number: US-ASTRAZENECA-2012SE08319

PATIENT
  Age: 44 Year
  Sex: Male

DRUGS (5)
  1. RANITIDINE [Concomitant]
  2. PREVACID [Concomitant]
  3. NEXIUM [Suspect]
     Route: 048
  4. PRILOSEC [Suspect]
     Route: 048
  5. PEPCID [Concomitant]

REACTIONS (3)
  - MALAISE [None]
  - DRUG INEFFECTIVE [None]
  - INTENTIONAL DRUG MISUSE [None]
